FAERS Safety Report 10040925 (Version 2)
Quarter: 2014Q2

REPORT INFORMATION
  Report Type: Spontaneous
  Country: US (occurrence: US)
  Receive Date: 20140327
  Receipt Date: 20140401
  Transmission Date: 20141212
  Serious: No
  Sender: FDA-Public Use
  Company Number: US-PFIZER INC-2014086050

PATIENT
  Age: 49 Year
  Sex: Male
  Weight: 65.76 kg

DRUGS (7)
  1. LYRICA [Suspect]
     Indication: ILL-DEFINED DISORDER
     Dosage: 50 MG, 3X/DAY
     Route: 048
     Dates: start: 20131112
  2. LYRICA [Suspect]
     Indication: BACK PAIN
     Dosage: 100 MG, 4X/DAY
  3. LYRICA [Suspect]
     Indication: PARAESTHESIA
  4. BUSPIRONE [Concomitant]
     Dosage: 5 MG, 2X/DAY
  5. PAROXETINE [Concomitant]
     Dosage: 40 MG, DAILY
  6. TOPIRAMATE [Concomitant]
     Dosage: 50 MG, DAILY
  7. OXYCODONE [Concomitant]
     Indication: PAIN
     Dosage: UNK

REACTIONS (1)
  - Therapeutic response changed [Unknown]
